FAERS Safety Report 4895624-1 (Version None)
Quarter: 2006Q1

REPORT INFORMATION
  Report Type: 
  Country: None (occurrence: None)
  Receive Date: 20060125
  Receipt Date: 20060119
  Transmission Date: 20060701
  Serious: Yes (Hospitalization)
  Sender: FDA-Public Use
  Company Number: TAP2005Q02202

PATIENT
  Age: 77 Year
  Sex: Male

DRUGS (6)
  1. LUPRON DEPOT-4 [Suspect]
     Indication: PROSTATE CANCER
     Dosage: 30 MG, 1 IN 4 M,
     Dates: start: 20050825
  2. CASODEX [Concomitant]
  3. FLOMAX (MORNIFLUMATE) [Concomitant]
  4. PANTOLOC (PANTOPRAZOLE) [Concomitant]
  5. SENNOSIDES (SENNOSIDE A+B CALCIUM) [Concomitant]
  6. NOVO-DUCOSATE [Concomitant]

REACTIONS (4)
  - BACK PAIN [None]
  - INJECTION SITE PAIN [None]
  - METASTATIC NEOPLASM [None]
  - PAIN [None]
